FAERS Safety Report 8582927-2 (Version None)
Quarter: 2012Q3

REPORT INFORMATION
  Report Type: 
  Country: None (occurrence: None)
  Receive Date: 20120809
  Receipt Date: 20120801
  Transmission Date: 20120928
  Serious: Yes (Other)
  Sender: FDA-Public Use
  Company Number: CA-JNJFOC-20111008850

PATIENT
  Sex: Female

DRUGS (1)
  1. STELARA [Suspect]
     Indication: PSORIASIS
     Route: 058

REACTIONS (7)
  - NAUSEA [None]
  - MASS [None]
  - ACNE [None]
  - HEADACHE [None]
  - DIZZINESS [None]
  - DRUG DOSE OMISSION [None]
  - PSORIASIS [None]
